FAERS Safety Report 9818200 (Version 1)
Quarter: 2014Q1

REPORT INFORMATION
  Report Type: Spontaneous
  Country: CN (occurrence: CN)
  Receive Date: 20140115
  Receipt Date: 20140115
  Transmission Date: 20141002
  Serious: Yes (Death, Life-Threatening)
  Sender: FDA-Public Use
  Company Number: CN-ASTELLAS-2014JP000337

PATIENT
  Age: 49 Year
  Sex: Male
  Weight: 75 kg

DRUGS (5)
  1. TACROLIMUS SUSTAINED-RELEASE CAPSULES [Suspect]
     Indication: PROPHYLAXIS AGAINST TRANSPLANT REJECTION
     Dosage: 11 MG, UNKNOWN/D
     Route: 048
     Dates: start: 20131214
  2. ATG-FRESENIUS S [Suspect]
     Indication: PROPHYLAXIS AGAINST TRANSPLANT REJECTION
     Dosage: 500 MG, UID/QD
     Route: 042
     Dates: start: 20131213, end: 20131213
  3. METHYLPREDNISOLONE [Suspect]
     Indication: PROPHYLAXIS AGAINST TRANSPLANT REJECTION
     Dosage: 1000 MG, UID/QD
     Route: 042
     Dates: start: 20131213, end: 20131213
  4. METHYLPREDNISOLONE [Suspect]
     Dosage: 500 MG, UID/QD
     Route: 042
     Dates: start: 20131214, end: 20131215
  5. INSULIN ASPART [Concomitant]
     Indication: TYPE 2 DIABETES MELLITUS
     Dosage: UNK
     Route: 058

REACTIONS (4)
  - Pulmonary embolism [Fatal]
  - Hypotension [Recovering/Resolving]
  - Post procedural haemorrhage [Recovering/Resolving]
  - Death [Fatal]
